FAERS Safety Report 20046339 (Version 1)
Quarter: 2021Q4

REPORT INFORMATION
  Report Type: Spontaneous
  Country: KR (occurrence: KR)
  Receive Date: 20211109
  Receipt Date: 20211109
  Transmission Date: 20220303
  Serious: Yes (Other)
  Sender: FDA-Public Use
  Company Number: KR-SA-2021SA364651

PATIENT
  Age: 32 Year
  Sex: Female

DRUGS (1)
  1. DUPILUMAB [Suspect]
     Active Substance: DUPILUMAB
     Indication: Dermatitis atopic

REACTIONS (5)
  - Lymph node tuberculosis [Recovering/Resolving]
  - Lymphadenopathy [Recovered/Resolved]
  - Granuloma [Recovering/Resolving]
  - Necrosis [Recovering/Resolving]
  - Lymph node palpable [Recovered/Resolved]
